FAERS Safety Report 13861273 (Version 3)
Quarter: 2017Q4

REPORT INFORMATION
  Report Type: Spontaneous
  Country: JP (occurrence: JP)
  Receive Date: 20170811
  Receipt Date: 20171227
  Transmission Date: 20180320
  Serious: Yes (Hospitalization)
  Sender: FDA-Public Use
  Company Number: JP-SA-2017SA144164

PATIENT
  Age: 76 Year
  Sex: Male
  Weight: 67 kg

DRUGS (18)
  1. ELPLAT [Suspect]
     Active Substance: OXALIPLATIN
     Indication: GASTRIC CANCER
     Route: 041
     Dates: start: 20170712, end: 20170712
  2. LASIX [Concomitant]
     Active Substance: FUROSEMIDE
     Route: 065
     Dates: start: 20170413
  3. JARDIANCE [Concomitant]
     Active Substance: EMPAGLIFLOZIN
     Route: 065
     Dates: start: 20170413
  4. DIART [Concomitant]
     Active Substance: AZOSEMIDE
     Route: 065
     Dates: start: 20170329
  5. MAINTATE [Concomitant]
     Active Substance: BISOPROLOL FUMARATE
     Route: 065
     Dates: start: 20170329
  6. TRAZENTA [Concomitant]
     Active Substance: LINAGLIPTIN
     Route: 065
     Dates: start: 20170413
  7. BASEN [Concomitant]
     Active Substance: VOGLIBOSE
     Route: 065
     Dates: start: 20170413
  8. ELPLAT [Suspect]
     Active Substance: OXALIPLATIN
     Indication: GASTRIC CANCER
     Route: 041
     Dates: start: 20170621, end: 20170621
  9. HERCEPTIN [Concomitant]
     Active Substance: TRASTUZUMAB
     Route: 065
     Dates: start: 20170419, end: 20170419
  10. ALDACTONE-A [Concomitant]
     Active Substance: SPIRONOLACTONE
     Route: 065
     Dates: start: 20170413
  11. ELPLAT [Suspect]
     Active Substance: OXALIPLATIN
     Indication: GASTRIC CANCER
     Route: 041
     Dates: start: 20170510, end: 20170510
  12. HERCEPTIN [Concomitant]
     Active Substance: TRASTUZUMAB
     Route: 065
     Dates: start: 20170712, end: 20170712
  13. TS-1 [Concomitant]
     Active Substance: GIMERACIL\OTERACIL\TEGAFUR
     Route: 065
     Dates: start: 20170419, end: 20170419
  14. TAKECAB [Concomitant]
     Active Substance: VONOPRAZAN FUMURATE
     Route: 065
     Dates: start: 20170407
  15. ELPLAT [Suspect]
     Active Substance: OXALIPLATIN
     Indication: GASTRIC CANCER
     Route: 041
     Dates: start: 20170419, end: 20170419
  16. ELPLAT [Suspect]
     Active Substance: OXALIPLATIN
     Indication: GASTRIC CANCER
     Route: 041
     Dates: start: 20170531, end: 20170531
  17. TS-1 [Concomitant]
     Active Substance: GIMERACIL\OTERACIL\TEGAFUR
     Route: 065
     Dates: start: 20170725, end: 20170725
  18. LANTUS [Concomitant]
     Active Substance: INSULIN GLARGINE
     Route: 065
     Dates: start: 20170413

REACTIONS (3)
  - Platelet count decreased [Unknown]
  - Hepatic cirrhosis [Recovering/Resolving]
  - Varices oesophageal [Recovering/Resolving]

NARRATIVE: CASE EVENT DATE: 20170724
